FAERS Safety Report 6997463-4 (Version None)
Quarter: 2010Q3

REPORT INFORMATION
  Report Type: 
  Country: None (occurrence: None)
  Receive Date: 20100918
  Receipt Date: 20091019
  Transmission Date: 20110219
  Serious: No
  Sender: FDA-Public Use
  Company Number: US-WYE-H11730109

PATIENT
  Sex: Female
  Weight: 101.7 kg

DRUGS (8)
  1. EFFEXOR XR [Suspect]
     Indication: ANXIETY
     Route: 048
     Dates: end: 20090901
  2. EFFEXOR XR [Suspect]
     Dosage: ^TAPERING^
     Route: 048
     Dates: start: 20090901, end: 20091001
  3. AMLODIPINE [Concomitant]
  4. PRISTIQ [Suspect]
     Indication: ANXIETY
     Route: 048
     Dates: start: 20091001, end: 20091014
  5. JANUVIA [Concomitant]
  6. METOPROLOL [Concomitant]
  7. ADVAIR DISKUS 100/50 [Concomitant]
  8. LANTUS [Concomitant]

REACTIONS (11)
  - ABDOMINAL DISTENSION [None]
  - ANXIETY [None]
  - BLOOD GLUCOSE INCREASED [None]
  - BLOOD PRESSURE INCREASED [None]
  - DIARRHOEA [None]
  - DIZZINESS [None]
  - MUSCULAR WEAKNESS [None]
  - MYALGIA [None]
  - NASAL CONGESTION [None]
  - NAUSEA [None]
  - SYNCOPE [None]
